FAERS Safety Report 20035552 (Version 2)
Quarter: 2021Q4

REPORT INFORMATION
  Report Type: Spontaneous
  Country: TR (occurrence: TR)
  Receive Date: 20211104
  Receipt Date: 20211122
  Transmission Date: 20220303
  Serious: Yes (Other)
  Sender: FDA-Public Use
  Company Number: TR-TEVA-2021-TR-1972518

PATIENT
  Age: 59 Year
  Sex: Male

DRUGS (3)
  1. METHOTREXATE [Suspect]
     Active Substance: METHOTREXATE
     Indication: Erythrodermic psoriasis
     Dosage: IN COMBINATION WITH ADALIMUMAB
     Route: 065
  2. ADALIMUMAB [Suspect]
     Active Substance: ADALIMUMAB
     Indication: Erythrodermic psoriasis
     Dosage: IN COMBINATION WITH METHOTREXATE AND LATER WITH ACITRETIN
     Route: 065
  3. ACITRETIN [Concomitant]
     Active Substance: ACITRETIN
     Indication: Product used for unknown indication
     Dosage: 35 MILLIGRAM DAILY;
     Route: 065

REACTIONS (2)
  - Diffuse large B-cell lymphoma stage IV [Recovering/Resolving]
  - Gastrointestinal disorder [Unknown]
